FAERS Safety Report 16218940 (Version 1)
Quarter: 2019Q2

REPORT INFORMATION
  Report Type: Spontaneous
  Country: ES (occurrence: ES)
  Receive Date: 20190419
  Receipt Date: 20190419
  Transmission Date: 20190711
  Serious: Yes (Other)
  Sender: FDA-Public Use
  Company Number: ES-CANTON LABORATORIES, LLC-2066058

PATIENT
  Age: 54 Year
  Sex: Male

DRUGS (14)
  1. OXYCODONE HYDROCHLORIDE. [Suspect]
     Active Substance: OXYCODONE HYDROCHLORIDE
     Route: 065
  2. CISPLATIN. [Concomitant]
     Active Substance: CISPLATIN
     Route: 065
  3. MEGESTROL ACETATE. [Concomitant]
     Active Substance: MEGESTROL ACETATE
     Route: 065
  4. ZOLEDRONATE (ZOLEDRONIC ACID) [Suspect]
     Active Substance: ZOLEDRONIC ACID
     Route: 065
  5. DEXAMETHASONE. [Concomitant]
     Active Substance: DEXAMETHASONE
     Route: 065
  6. NAPROSYN [Suspect]
     Active Substance: NAPROXEN
     Indication: CANCER PAIN
     Route: 065
  7. OMEPRAZOLE. [Suspect]
     Active Substance: OMEPRAZOLE
     Route: 065
  8. KETAMINE HYDROCHLORIDE. [Suspect]
     Active Substance: KETAMINE HYDROCHLORIDE
     Route: 065
  9. PAROXETINE. [Concomitant]
     Active Substance: PAROXETINE
     Route: 065
  10. FENTANYL. [Suspect]
     Active Substance: FENTANYL
     Route: 045
  11. PREGABALIN. [Suspect]
     Active Substance: PREGABALIN
     Route: 065
  12. DULOXETINE. [Suspect]
     Active Substance: DULOXETINE
     Route: 065
  13. BACLOFEN. [Suspect]
     Active Substance: BACLOFEN
     Route: 065
  14. PEMETREXED. [Concomitant]
     Active Substance: PEMETREXED
     Route: 065

REACTIONS (16)
  - Depression [Recovering/Resolving]
  - Decreased appetite [Recovering/Resolving]
  - Constipation [Unknown]
  - Somnolence [Unknown]
  - Cognitive disorder [Unknown]
  - Insomnia [Unknown]
  - Fatigue [Unknown]
  - Sleep apnoea syndrome [Unknown]
  - Dysphagia [Unknown]
  - Anxiety [Unknown]
  - Vomiting [Unknown]
  - Urinary retention [Unknown]
  - Dyspnoea [Unknown]
  - Delirium [Unknown]
  - Pulmonary embolism [Unknown]
  - Adverse event [Unknown]
